FAERS Safety Report 5839562-6 (Version None)
Quarter: 2008Q3

REPORT INFORMATION
  Report Type: 
  Country: None (occurrence: None)
  Receive Date: 20080811
  Receipt Date: 20080731
  Transmission Date: 20090109
  Serious: Yes (Other)
  Sender: FDA-Public Use
  Company Number: US-JNJFOC-20080707403

PATIENT
  Age: 69 Year
  Sex: Male

DRUGS (5)
  1. REMICADE [Suspect]
     Route: 042
  2. REMICADE [Suspect]
     Dosage: 3 INFUSIONS ON UNSPECIFIED DATES
     Route: 042
  3. REMICADE [Suspect]
     Indication: COLITIS ULCERATIVE
     Route: 042
  4. ALLEGRA [Concomitant]
  5. SOLU-MEDROL [Concomitant]
     Indication: PREMEDICATION
     Route: 042

REACTIONS (3)
  - ARTHRALGIA [None]
  - IMMOBILE [None]
  - PYREXIA [None]
